FAERS Safety Report 9911894 (Version 2)
Quarter: 2014Q1

REPORT INFORMATION
  Report Type: Spontaneous
  Country: US (occurrence: US)
  Receive Date: 20140219
  Receipt Date: 20140219
  Transmission Date: 20141002
  Serious: No
  Sender: FDA-Public Use
  Company Number: US-MYLANLABS-2013S1016066

PATIENT
  Age: 30 Year
  Sex: Male

DRUGS (1)
  1. EPIPEN [Suspect]
     Indication: HYPERSENSITIVITY
     Dosage: 0.3 MG, AS NEEDED (ONE DOSE)
     Route: 030
     Dates: start: 20130708, end: 20130708

REACTIONS (2)
  - Drug administration error [Unknown]
  - Product quality issue [Unknown]
